FAERS Safety Report 8393439-3 (Version None)
Quarter: 2012Q2

REPORT INFORMATION
  Report Type: 
  Country: None (occurrence: None)
  Receive Date: 20120529
  Receipt Date: 20120522
  Transmission Date: 20120825
  Serious: Yes (Other)
  Sender: FDA-Public Use
  Company Number: PHHY2012US044874

PATIENT
  Age: 74 Year
  Sex: Female

DRUGS (2)
  1. BUFFERIN [Suspect]
     Indication: CARDIAC DISORDER
     Dosage: 1 DF, DAILY
     Route: 048
     Dates: end: 20120201
  2. BUFFERIN [Suspect]
     Indication: HEADACHE

REACTIONS (3)
  - INCORRECT DRUG ADMINISTRATION DURATION [None]
  - ATRIAL FIBRILLATION [None]
  - CARDIAC FAILURE CONGESTIVE [None]
